FAERS Safety Report 14618782 (Version 2)
Quarter: 2018Q1

REPORT INFORMATION
  Report Type: Spontaneous
  Country: US (occurrence: US)
  Receive Date: 20180309
  Receipt Date: 20180314
  Transmission Date: 20180509
  Serious: Yes (Hospitalization, Other)
  Sender: FDA-Public Use
  Company Number: US-PFIZER INC-2018093114

PATIENT
  Age: 57 Year
  Sex: Female
  Weight: 81.65 kg

DRUGS (10)
  1. METFORMIN [Concomitant]
     Active Substance: METFORMIN HYDROCHLORIDE
     Indication: DIABETES MELLITUS
     Dosage: 1000 MG, 1X/DAY(1000MG BY MOUTH ONCE A DAY- TWO 500MG TABLETS)
     Route: 048
     Dates: start: 2015
  2. NABUMETONE. [Concomitant]
     Active Substance: NABUMETONE
     Indication: PAIN
  3. OXYCODONE [Concomitant]
     Active Substance: OXYCODONE
     Indication: PAIN
     Dosage: 20MG TABLETS EVERY 6 HOURS
     Route: 048
     Dates: start: 201704
  4. GABAPENTIN. [Concomitant]
     Active Substance: GABAPENTIN
     Indication: PARAESTHESIA
     Dosage: 600 MG, 2X/DAY(300MG TABLETS TWO IN THE MORNING AND TWO AT NIGHT)
     Route: 048
     Dates: start: 2016
  5. CHANTIX [Suspect]
     Active Substance: VARENICLINE TARTRATE
     Indication: SMOKING CESSATION THERAPY
     Dosage: 2X/DAY
     Route: 048
     Dates: start: 20170924, end: 20171018
  6. TRULICITY [Concomitant]
     Active Substance: DULAGLUTIDE
     Indication: DIABETES MELLITUS
     Dosage: 1.5 MG, WEEKLY(1.5MG INJECTION ONCE A WEEK)
     Dates: start: 2017
  7. WELLBUTRIN [Concomitant]
     Active Substance: BUPROPION HYDROCHLORIDE
     Indication: DEPRESSION
     Dosage: 150 MG, 1X/DAY
     Route: 048
     Dates: start: 201701
  8. OXYCODONE [Concomitant]
     Active Substance: OXYCODONE
     Dosage: 15 MG, UNK
  9. NABUMETONE. [Concomitant]
     Active Substance: NABUMETONE
     Indication: MUSCLE RELAXANT THERAPY
     Dosage: 750 MG, 1X/DAY
     Route: 048
     Dates: start: 2016
  10. LORAZEPAM. [Concomitant]
     Active Substance: LORAZEPAM
     Indication: MENTAL DISORDER
     Dosage: 0.5 MG, 2X/DAY(0.5MG TABLET TWICE A DAY; 1 IN THE MORNING AND 1 AT NIGHT)
     Route: 048
     Dates: start: 2016

REACTIONS (4)
  - Irritability [Recovered/Resolved]
  - Crying [Not Recovered/Not Resolved]
  - Anger [Recovered/Resolved]
  - Suicidal ideation [Unknown]

NARRATIVE: CASE EVENT DATE: 201710
